FAERS Safety Report 4998820-8 (Version None)
Quarter: 2006Q2

REPORT INFORMATION
  Report Type: 
  Country: None (occurrence: None)
  Receive Date: 20060510
  Receipt Date: 20050601
  Transmission Date: 20061013
  Serious: Yes (Hospitalization, Disabling)
  Sender: FDA-Public Use
  Company Number: US-MERCK-0506USA00677

PATIENT
  Age: 72 Year
  Sex: Female
  Weight: 48 kg

DRUGS (6)
  1. VIOXX [Suspect]
     Indication: OSTEOPOROSIS
     Route: 048
     Dates: start: 20040804, end: 20040801
  2. VIOXX [Suspect]
     Route: 048
     Dates: start: 20030305
  3. VIOXX [Suspect]
     Route: 048
     Dates: start: 20030210
  4. VIOXX [Suspect]
     Route: 048
     Dates: start: 20020910
  5. VIOXX [Suspect]
     Route: 048
     Dates: start: 20020523
  6. VIOXX [Suspect]
     Route: 048
     Dates: start: 20020522

REACTIONS (17)
  - ARTHRALGIA [None]
  - ARTHRITIS [None]
  - ATRIAL FIBRILLATION [None]
  - CHEST PAIN [None]
  - CHRONIC OBSTRUCTIVE PULMONARY DISEASE [None]
  - CORONARY ARTERY DISEASE [None]
  - DYSPNOEA [None]
  - FALL [None]
  - HYPERTENSION [None]
  - JOINT INJURY [None]
  - MUSCULOSKELETAL CHEST PAIN [None]
  - MYOCARDIAL INFARCTION [None]
  - PERIPHERAL VASCULAR DISORDER [None]
  - PYREXIA [None]
  - RENAL FAILURE [None]
  - RESPIRATORY DISTRESS [None]
  - RESPIRATORY FAILURE [None]
